FAERS Safety Report 22070287 (Version 1)
Quarter: 2023Q1

REPORT INFORMATION
  Report Type: Spontaneous
  Country: US (occurrence: None)
  Receive Date: 20230307
  Receipt Date: 20230307
  Transmission Date: 20230417
  Serious: Yes (Other)
  Sender: FDA-Public Use
  Company Number: US-FARMAPROD-202302-0519

PATIENT
  Sex: Female

DRUGS (10)
  1. OXERVATE [Suspect]
     Active Substance: CENEGERMIN-BKBJ
     Indication: Neurotrophic keratopathy
     Route: 047
     Dates: start: 20221221, end: 20230220
  2. VALIUM [Concomitant]
     Active Substance: DIAZEPAM
  3. ZOLOFT [Concomitant]
     Active Substance: SERTRALINE HYDROCHLORIDE
  4. TOPIRAMATE [Concomitant]
     Active Substance: TOPIRAMATE
  5. NADOLOL [Concomitant]
     Active Substance: NADOLOL
  6. LIPITOR [Concomitant]
     Active Substance: ATORVASTATIN CALCIUM
  7. POTASSIUM CHLORIDE [Concomitant]
     Active Substance: POTASSIUM CHLORIDE
  8. METHIMAZOLE [Concomitant]
     Active Substance: METHIMAZOLE
  9. FUROSEMIDE [Concomitant]
     Active Substance: FUROSEMIDE
  10. ELIQUIS [Concomitant]
     Active Substance: APIXABAN

REACTIONS (1)
  - Pneumonia [Unknown]
